FAERS Safety Report 6940911-6 (Version None)
Quarter: 2010Q3

REPORT INFORMATION
  Report Type: 
  Country: None (occurrence: None)
  Receive Date: 20100825
  Receipt Date: 20100817
  Transmission Date: 20110219
  Serious: Yes (Hospitalization)
  Sender: FDA-Public Use
  Company Number: A0785086A

PATIENT
  Age: 49 Year
  Sex: Male

DRUGS (2)
  1. AVANDIA [Suspect]
     Dosage: 4MG TWICE PER DAY
     Route: 048
     Dates: start: 20051216, end: 20070101
  2. AVANDAMET [Suspect]
     Route: 048
     Dates: start: 20031124, end: 20051216

REACTIONS (8)
  - CARDIAC FAILURE CONGESTIVE [None]
  - DYSPNOEA [None]
  - LUNG DISORDER [None]
  - OEDEMA [None]
  - PAIN [None]
  - PNEUMONIA [None]
  - SILENT MYOCARDIAL INFARCTION [None]
  - STENT PLACEMENT [None]
